FAERS Safety Report 8604669 (Version 3)
Quarter: 2015Q2

REPORT INFORMATION
  Report Type: Report from Study
  Country: US (occurrence: US)
  Receive Date: 20120608
  Receipt Date: 20150417
  Transmission Date: 20150821
  Serious: Yes (Death, Other)
  Sender: FDA-Public Use
  Company Number: US-ASTELLAS-2012US005259

PATIENT
  Sex: Female

DRUGS (1)
  1. ERLOTINIB [Suspect]
     Active Substance: ERLOTINIB
     Indication: GALLBLADDER CANCER
     Route: 065

REACTIONS (2)
  - Cardio-respiratory arrest [Fatal]
  - Gallbladder cancer metastatic [Fatal]
